FAERS Safety Report 14716349 (Version 3)
Quarter: 2020Q2

REPORT INFORMATION
  Report Type: Spontaneous
  Country: IT (occurrence: IT)
  Receive Date: 20180404
  Receipt Date: 20200528
  Transmission Date: 20200713
  Serious: Yes (Life-Threatening, Other)
  Sender: FDA-Public Use
  Company Number: PHHY2018IT058083

PATIENT
  Age: 65 Year
  Sex: Male

DRUGS (6)
  1. HAWTHORN [Concomitant]
     Active Substance: CRATAEGUS LAEVIGATA FRUIT
     Indication: PRODUCT USED FOR UNKNOWN INDICATION
     Dosage: UNK
     Route: 065
  2. OLEA EUROPAEA LEAF EXTRACT [Concomitant]
     Active Substance: HERBALS
     Indication: PRODUCT USED FOR UNKNOWN INDICATION
     Dosage: UNK
     Route: 065
  3. DOXAZOSIN MESYLATE. [Suspect]
     Active Substance: DOXAZOSIN MESYLATE
     Indication: HYPERTENSION
     Dosage: UNK
     Route: 048
     Dates: start: 2011
  4. RAMIPRIL. [Suspect]
     Active Substance: RAMIPRIL
     Indication: HYPERTENSION
     Dosage: UNK
     Route: 048
     Dates: start: 2011
  5. RAMIPRIL+HYDROCHLOROTHIAZIDE [Suspect]
     Active Substance: HYDROCHLOROTHIAZIDE\RAMIPRIL
     Indication: HYPERTENSION
     Dosage: UNK
     Route: 048
     Dates: start: 2011
  6. CARVEDILOL. [Suspect]
     Active Substance: CARVEDILOL
     Indication: HYPERTENSION
     Dosage: UNK
     Route: 048
     Dates: start: 2011

REACTIONS (18)
  - Gastric disorder [Recovering/Resolving]
  - Salivary hypersecretion [Recovering/Resolving]
  - Speech disorder [Recovering/Resolving]
  - Respiratory disorder [Unknown]
  - Angioedema [Recovering/Resolving]
  - Cough [Unknown]
  - Oesophageal disorder [Recovering/Resolving]
  - Mouth breathing [Recovering/Resolving]
  - Angioedema [Recovering/Resolving]
  - Abdominal distension [Unknown]
  - Oedema peripheral [Unknown]
  - Somnolence [Unknown]
  - Abdominal discomfort [Unknown]
  - Bronchial disorder [Recovering/Resolving]
  - Dyspnoea [Recovering/Resolving]
  - Orthostatic hypotension [Unknown]
  - Asthma [Unknown]
  - Oesophageal discomfort [Unknown]

NARRATIVE: CASE EVENT DATE: 2017
